FAERS Safety Report 18879080 (Version 4)
Quarter: 2021Q2

REPORT INFORMATION
  Report Type: Spontaneous
  Country: US (occurrence: US)
  Receive Date: 20210211
  Receipt Date: 20210519
  Transmission Date: 20210717
  Serious: Yes (Other)
  Sender: FDA-Public Use
  Company Number: US-PFIZER INC-2021123321

PATIENT
  Age: 62 Year
  Sex: Male

DRUGS (2)
  1. RUXIENCE [Suspect]
     Active Substance: RITUXIMAB-PVVR
     Indication: LYMPHOMA
  2. RUXIENCE [Suspect]
     Active Substance: RITUXIMAB-PVVR
     Indication: NEOPLASM MALIGNANT
     Dosage: UNK

REACTIONS (4)
  - Crohn^s disease [Unknown]
  - Illness [Unknown]
  - Off label use [Unknown]
  - Fatigue [Unknown]
